FAERS Safety Report 18408993 (Version 1)
Quarter: 2020Q4

REPORT INFORMATION
  Report Type: Spontaneous
  Country: IT (occurrence: IT)
  Receive Date: 20201020
  Receipt Date: 20201020
  Transmission Date: 20210114
  Serious: Yes (Other)
  Sender: FDA-Public Use
  Company Number: IT-JIANGSU HENGRUI MEDICINE CO., LTD.-2092972

PATIENT

DRUGS (2)
  1. OXALIPLATIN INJECTION USP, 5 MG/ML, PACKAGED IN 50 MG/10 ML AND 100 MG [Suspect]
     Active Substance: OXALIPLATIN
     Indication: GASTRIC CANCER
  2. CAPECIABINE [Suspect]
     Active Substance: CAPECITABINE

REACTIONS (2)
  - Product use in unapproved indication [Unknown]
  - Hepatic infarction [Unknown]
